FAERS Safety Report 7785518-6 (Version None)
Quarter: 2011Q3

REPORT INFORMATION
  Report Type: 
  Country: None (occurrence: None)
  Receive Date: 20110929
  Receipt Date: 20110920
  Transmission Date: 20111222
  Serious: Yes (Hospitalization)
  Sender: FDA-Public Use
  Company Number: US-BAYER-2011-053597

PATIENT
  Age: 31 Year
  Sex: Female
  Weight: 93.424 kg

DRUGS (1)
  1. MIRENA [Suspect]
     Indication: CONTRACEPTION
     Dosage: 20 ?G, UNK
     Route: 015
     Dates: start: 20110201, end: 20110609

REACTIONS (2)
  - PAIN [None]
  - ECTOPIC PREGNANCY [None]
